FAERS Safety Report 9547388 (Version 1)
Quarter: 2013Q2

REPORT INFORMATION
  Report Type: Spontaneous
  Country: US (occurrence: None)
  Receive Date: 20130524
  Receipt Date: 20130524
  Transmission Date: 20140414
  Serious: No
  Sender: FDA-Public Use
  Company Number: PHEH2012US023994

PATIENT
  Age: 58 Year
  Sex: Female

DRUGS (8)
  1. GILENYA [Suspect]
     Indication: MULTIPLE SCLEROSIS
     Route: 048
     Dates: start: 20121019, end: 20121231
  2. EFFEXOR (VENLAFAXINE HYDROCHLORIDE) UNKNOWN [Concomitant]
  3. LISINOPRIL AND HYDROCHLOROTHIAZIDE (HYDROCHLOROTHIAZIDE, LISINOPRIL) [Concomitant]
  4. TIZANIDINE (TIZANIDINE) [Concomitant]
  5. VITAMIN B (VITAMIN B COMPLEX) [Concomitant]
  6. ASCORBIC ACID (ASCORBIC ACID) [Concomitant]
  7. VITAMIN D (ERGOCALCIFEROL) [Concomitant]
  8. LOVAZA (OMEGA-3-ACID ETHYL ESTER) [Concomitant]

REACTIONS (6)
  - Pyrexia [None]
  - Fatigue [None]
  - Nausea [None]
  - Malaise [None]
  - Diarrhoea [None]
  - Influenza like illness [None]
